FAERS Safety Report 8912084 (Version 1)
Quarter: 2012Q4

REPORT INFORMATION
  Report Type: Report from Study
  Country: US (occurrence: US)
  Receive Date: 20121115
  Receipt Date: 20121115
  Transmission Date: 20130627
  Serious: Yes (Hospitalization, Other)
  Sender: FDA-Public Use
  Company Number: US-ABBOTT-12P-163-1005502-00

PATIENT
  Age: 35 Year
  Sex: Male

DRUGS (2)
  1. HUMIRA PEN [Suspect]
     Indication: CROHN^S DISEASE
     Dates: start: 2007, end: 201111
  2. 6-MP [Concomitant]
     Indication: PRODUCT USED FOR UNKNOWN INDICATION

REACTIONS (12)
  - Abdominal adhesions [Not Recovered/Not Resolved]
  - Histoplasmosis [Not Recovered/Not Resolved]
  - Nasopharyngitis [Unknown]
  - Pyrexia [Unknown]
  - Vomiting [Unknown]
  - Cough [Unknown]
  - Rhinorrhoea [Unknown]
  - Vitamin B12 decreased [Unknown]
  - Weight decreased [Unknown]
  - Crohn^s disease [Unknown]
  - Blood potassium decreased [Unknown]
  - Hypophagia [Unknown]
